FAERS Safety Report 5009491-9 (Version None)
Quarter: 2006Q2

REPORT INFORMATION
  Report Type: 
  Country: None (occurrence: None)
  Receive Date: 20060524
  Receipt Date: 20060320
  Transmission Date: 20061013
  Serious: Yes (Other)
  Sender: FDA-Public Use
  Company Number: JP-GILEAD-2006-0009337

PATIENT
  Sex: Male

DRUGS (17)
  1. HEPSERA [Suspect]
     Indication: HEPATIC CIRRHOSIS
     Route: 048
     Dates: start: 20020311
  2. PROGRAF [Suspect]
     Indication: DRUG USE FOR UNKNOWN INDICATION
     Dates: start: 20020501, end: 20051206
  3. CELLCEPT [Suspect]
     Indication: DRUG USE FOR UNKNOWN INDICATION
     Dates: start: 20020701
  4. PREDONINE [Suspect]
     Indication: DRUG USE FOR UNKNOWN INDICATION
     Dates: start: 20020601
  5. TAKEPRON [Concomitant]
  6. MUCOSTA [Concomitant]
     Dates: start: 20020501
  7. LOXONIN [Concomitant]
  8. GASTER D [Concomitant]
  9. DIFLUCAN [Concomitant]
     Dates: start: 20020501
  10. ZEFFIX [Concomitant]
     Dates: start: 20000101, end: 20041201
  11. AMINOLEBAN EN [Concomitant]
     Dates: start: 20020501
  12. BIOFERMIN R [Concomitant]
  13. ZOVIRAX [Concomitant]
     Dates: start: 20020501
  14. DAONIL [Concomitant]
     Dates: start: 20020701
  15. PARIET [Concomitant]
     Dates: start: 20020501
  16. PERSANTIN [Concomitant]
  17. URSO [Concomitant]

REACTIONS (7)
  - ARTHRALGIA [None]
  - ASPARTATE AMINOTRANSFERASE INCREASED [None]
  - BLOOD ALKALINE PHOSPHATASE INCREASED [None]
  - BLOOD BILIRUBIN INCREASED [None]
  - GAMMA-GLUTAMYLTRANSFERASE INCREASED [None]
  - MUSCLE ATROPHY [None]
  - OSTEOPOROSIS [None]
